FAERS Safety Report 5786800-4 (Version None)
Quarter: 2008Q2

REPORT INFORMATION
  Report Type: 
  Country: None (occurrence: None)
  Receive Date: 20080620
  Receipt Date: 20080615
  Transmission Date: 20081010
  Serious: Yes (Hospitalization)
  Sender: FDA-Public Use
  Company Number: CHPA2008US09964

PATIENT
  Age: 74 Year
  Sex: Female

DRUGS (5)
  1. GAS-X UNKNOWN FORMULA (NCH) (SIMETHICONE) UNKNOWN [Suspect]
     Indication: FLATULENCE
     Dosage: ON AND OFF YEARS, ORAL
     Route: 048
  2. TOPRAL (SULTOPRIDE) [Concomitant]
  3. COUMADIN [Concomitant]
  4. RYTHMOL [Concomitant]
  5. GAVISCON [Concomitant]

REACTIONS (3)
  - CARDIAC PACEMAKER INSERTION [None]
  - COLLAPSE OF LUNG [None]
  - DRUG INEFFECTIVE [None]
